FAERS Safety Report 8353774-1 (Version None)
Quarter: 2012Q2

REPORT INFORMATION
  Report Type: 
  Country: None (occurrence: None)
  Receive Date: 20120511
  Receipt Date: 20111102
  Transmission Date: 20120825
  Serious: No
  Sender: FDA-Public Use
  Company Number: US-GLAXOSMITHKLINE-A0952231A

PATIENT
  Sex: Female

DRUGS (3)
  1. IMODIUM [Concomitant]
     Indication: DIARRHOEA
  2. XELODA [Concomitant]
     Dosage: 4TAB TWICE PER DAY
  3. TYKERB [Suspect]
     Dosage: 1250MG PER DAY
     Route: 065
     Dates: start: 20111025

REACTIONS (1)
  - RASH MACULAR [None]
